FAERS Safety Report 4814419-8 (Version None)
Quarter: 2005Q4

REPORT INFORMATION
  Report Type: 
  Country: None (occurrence: None)
  Receive Date: 20051028
  Receipt Date: 20050823
  Transmission Date: 20060501
  Serious: No
  Sender: FDA-Public Use
  Company Number: US-GLAXOSMITHKLINE-A0571462A

PATIENT
  Age: 44 Year
  Sex: Female

DRUGS (20)
  1. ADVAIR DISKUS 100/50 [Suspect]
     Indication: ASTHMA
     Dosage: 1PUFF TWICE PER DAY
     Route: 055
     Dates: start: 20040101
  2. TRICOR [Concomitant]
  3. AVAPRO [Concomitant]
  4. PLAVIX [Concomitant]
  5. LASIX [Concomitant]
  6. DETROL LA [Concomitant]
  7. PREMARIN [Concomitant]
  8. WELLBUTRIN XL [Concomitant]
  9. PROTONIX [Concomitant]
  10. CALCIUM CALTRATE [Concomitant]
  11. VITAMIN D [Concomitant]
  12. ATROVENT [Concomitant]
  13. ATIVAN [Concomitant]
  14. PRAVACHOL [Concomitant]
  15. SINGULAIR [Concomitant]
  16. ALLEGRA [Concomitant]
  17. SODIUM CHLORIDE NASAL SPRAY [Concomitant]
  18. POTASSIUM SUPPLEMENT [Concomitant]
  19. ALBUTEROL [Concomitant]
     Route: 055
  20. ALBUTEROL [Concomitant]

REACTIONS (2)
  - DRUG INEFFECTIVE [None]
  - PHARMACEUTICAL PRODUCT COMPLAINT [None]
